FAERS Safety Report 25735451 (Version 2)
Quarter: 2025Q3

REPORT INFORMATION
  Report Type: Spontaneous
  Country: US (occurrence: US)
  Receive Date: 20250828
  Receipt Date: 20250903
  Transmission Date: 20251020
  Serious: Yes (Life-Threatening, Hospitalization, Other)
  Sender: PFIZER
  Company Number: US-PFIZER INC-PV202500103314

PATIENT
  Age: 61 Year
  Sex: Female

DRUGS (2)
  1. BUTORPHANOL TARTRATE [Suspect]
     Active Substance: BUTORPHANOL TARTRATE
  2. FENTANYL [Concomitant]
     Active Substance: FENTANYL

REACTIONS (3)
  - Intentional product misuse [Unknown]
  - Drug withdrawal syndrome [Recovering/Resolving]
  - Stress cardiomyopathy [Recovering/Resolving]
